FAERS Safety Report 19979190 (Version 1)
Quarter: 2021Q4

REPORT INFORMATION
  Report Type: Spontaneous
  Country: US (occurrence: US)
  Receive Date: 20211021
  Receipt Date: 20211021
  Transmission Date: 20220303
  Serious: Yes (Hospitalization, Other)
  Sender: FDA-Public Use
  Company Number: None

PATIENT
  Age: 72 Year
  Sex: Female
  Weight: 60.75 kg

DRUGS (1)
  1. KYPROLIS [Suspect]
     Active Substance: CARFILZOMIB
     Indication: Plasma cell myeloma

REACTIONS (7)
  - Platelet count decreased [None]
  - Fatigue [None]
  - Red blood cell count decreased [None]
  - Atrial fibrillation [None]
  - Pulmonary hypertension [None]
  - Cardiac disorder [None]
  - Pulmonary embolism [None]

NARRATIVE: CASE EVENT DATE: 20210908
